FAERS Safety Report 9324475 (Version 1)
Quarter: 2013Q2

REPORT INFORMATION
  Report Type: Report from Study
  Country: JP (occurrence: JP)
  Receive Date: 20130603
  Receipt Date: 20130603
  Transmission Date: 20140414
  Serious: Yes (Other)
  Sender: FDA-Public Use
  Company Number: JP-BRISTOL-MYERS SQUIBB COMPANY-17359795

PATIENT
  Age: 58 Year
  Sex: Male
  Weight: 48 kg

DRUGS (6)
  1. ERBITUX SOLN FOR INF 5MG/ML [Suspect]
     Indication: RECTAL CANCER
     Dosage: (SKIPPED WEEK 250 MG, 1 IN 1 WEEK )?25NOV08-25NOV08?02DEC08-15OCT09
     Route: 041
     Dates: start: 20081125, end: 20091015
  2. WARFARIN SODIUM [Suspect]
     Indication: REGIONAL CHEMOTHERAPY
     Dosage: TABS
     Route: 048
     Dates: start: 20080818, end: 20091204
  3. IRINOTECAN [Concomitant]
     Indication: RECTAL CANCER
     Dosage: 25NV08-01OCT09:100MG/WK(INCLUDING SKIPPED WEEK)
     Route: 041
     Dates: start: 20081125, end: 20091001
  4. RESTAMIN [Concomitant]
     Indication: PREMEDICATION
     Dosage: TABS
     Route: 048
     Dates: start: 20081125
  5. ORGADRONE [Concomitant]
     Indication: PREMEDICATION
     Route: 042
     Dates: start: 20081125
  6. KYTRIL [Concomitant]
     Indication: ANTIEMETIC SUPPORTIVE CARE
     Dosage: INJ
     Dates: start: 20081125, end: 20091015

REACTIONS (7)
  - Pituitary haemorrhage [Recovering/Resolving]
  - Cerebellar infarction [Recovering/Resolving]
  - Hyperamylasaemia [Recovering/Resolving]
  - Acne [Recovering/Resolving]
  - Paronychia [Recovering/Resolving]
  - Hypomagnesaemia [Not Recovered/Not Resolved]
  - Conjunctivitis [Recovered/Resolved]
